FAERS Safety Report 19458394 (Version 1)
Quarter: 2021Q2

REPORT INFORMATION
  Report Type: Spontaneous
  Country: US (occurrence: US)
  Receive Date: 20210624
  Receipt Date: 20210624
  Transmission Date: 20210717
  Serious: No
  Sender: FDA-Public Use
  Company Number: None

PATIENT
  Age: 79 Year
  Sex: Male
  Weight: 89.1 kg

DRUGS (4)
  1. OMEPRAZOLE. [Suspect]
     Active Substance: OMEPRAZOLE
     Indication: OESOPHAGITIS
     Route: 048
     Dates: start: 20210315, end: 20210430
  2. ALFUZOSIN [Concomitant]
     Active Substance: ALFUZOSIN
  3. VITAMIN D [Concomitant]
     Active Substance: VITAMIN D NOS
  4. OMEPRAZOLE. [Suspect]
     Active Substance: OMEPRAZOLE
     Indication: BARRETT^S OESOPHAGUS
     Route: 048
     Dates: start: 20210315, end: 20210430

REACTIONS (4)
  - Myalgia [None]
  - Muscle spasms [None]
  - Fall [None]
  - Mobility decreased [None]

NARRATIVE: CASE EVENT DATE: 20210429
